FAERS Safety Report 11184701 (Version 2)
Quarter: 2015Q4

REPORT INFORMATION
  Report Type: Report from Study
  Country: US (occurrence: US)
  Receive Date: 20150612
  Receipt Date: 20151112
  Transmission Date: 20160304
  Serious: Yes (Death, Other)
  Sender: FDA-Public Use
  Company Number: US-SA-2015SA081865

PATIENT
  Age: 85 Year
  Sex: Female

DRUGS (1)
  1. CAMPATH [Suspect]
     Active Substance: ALEMTUZUMAB
     Route: 065

REACTIONS (2)
  - Hip fracture [Unknown]
  - Death [Fatal]
